FAERS Safety Report 6928827-2 (Version None)
Quarter: 2010Q3

REPORT INFORMATION
  Report Type: 
  Country: None (occurrence: None)
  Receive Date: 20100806
  Receipt Date: 20090709
  Transmission Date: 20110219
  Serious: No
  Sender: FDA-Public Use
  Company Number: 2009-00329

PATIENT
  Age: 35 Year
  Sex: Male
  Weight: 74.8435 kg

DRUGS (2)
  1. ZICAM ALLERGY RELIEF NASAL GEL [Suspect]
     Indication: SEASONAL ALLERGY
     Dosage: QID X 1 WEEK
     Dates: start: 20080501, end: 20080501
  2. ZICAM COLD REMEDY NASAL GEL [Suspect]
     Indication: NASOPHARYNGITIS
     Dosage: QID X 1 WEEK
     Dates: start: 20080501, end: 20080501

REACTIONS (2)
  - AGEUSIA [None]
  - ANOSMIA [None]
